FAERS Safety Report 17545916 (Version 2)
Quarter: 2020Q1

REPORT INFORMATION
  Report Type: Spontaneous
  Country: US (occurrence: US)
  Receive Date: 20200316
  Receipt Date: 20200320
  Transmission Date: 20200409
  Serious: Yes (Life-Threatening, Hospitalization, Other)
  Sender: FDA-Public Use
  Company Number: US-PFIZER INC-2020110859

PATIENT
  Age: 45 Year
  Sex: Female

DRUGS (5)
  1. PROGESTERONE. [Suspect]
     Active Substance: PROGESTERONE
     Indication: IN VITRO FERTILISATION
     Dosage: UNK (INTRAMUSCULAR PROGESTERONE IN OIL)
     Route: 030
  2. PROGESTERONE. [Suspect]
     Active Substance: PROGESTERONE
     Dosage: UNK
  3. LEUPRORELIN [Suspect]
     Active Substance: LEUPROLIDE ACETATE
     Indication: HORMONE SUPPRESSION THERAPY
     Dosage: UNK
  4. ESTRADIOL. [Suspect]
     Active Substance: ESTRADIOL
     Indication: IN VITRO FERTILISATION
     Dosage: UNK (TOTAL STIMULATION TIME WAS 3 WEEKS OF UNOPPOSED ESTRADIOL)
     Route: 067
  5. ESTRADIOL. [Suspect]
     Active Substance: ESTRADIOL
     Dosage: UNK (TOTAL STIMULATION TIME WAS 3 WEEKS OF UNOPPOSED ESTRADIOL)

REACTIONS (3)
  - Endometrial stromal sarcoma [Unknown]
  - Off label use [Unknown]
  - Product use in unapproved indication [Unknown]
